FAERS Safety Report 9508490 (Version 1)
Quarter: 2013Q1

REPORT INFORMATION
  Report Type: Spontaneous
  Country: US (occurrence: None)
  Receive Date: 20130305
  Receipt Date: 20130305
  Transmission Date: 20140127
  Serious: Yes (Other)
  Sender: FDA-Public Use
  Company Number: 163-21880-12083434

PATIENT
  Age: 91 Year
  Sex: Female

DRUGS (5)
  1. REVLIMID [Suspect]
     Indication: MYELODYSPLASTIC SYNDROME
     Route: 048
     Dates: start: 201110
  2. WARFARIN [Concomitant]
  3. DIGOXIN [Concomitant]
  4. FUROSEMIDE [Concomitant]
  5. AMIDARONE (AMIODARONE HYDROCHLORIDE) [Concomitant]

REACTIONS (3)
  - Drug intolerance [None]
  - Fatigue [None]
  - Full blood count decreased [None]
